FAERS Safety Report 26037510 (Version 2)
Quarter: 2025Q4

REPORT INFORMATION
  Report Type: Spontaneous
  Country: JP (occurrence: JP)
  Receive Date: 20251112
  Receipt Date: 20251209
  Transmission Date: 20260118
  Serious: Yes (Hospitalization)
  Sender: AMGEN
  Company Number: JP-AMGEN-JPNSP2025219823

PATIENT
  Age: 84 Year
  Sex: Male

DRUGS (2)
  1. OTEZLA [Suspect]
     Active Substance: APREMILAST
     Indication: Psoriasis
     Dosage: 60 MILLIGRAM, QD
     Route: 048
     Dates: start: 20251015, end: 20251027
  2. FOSRAVUCONAZOLE L-LYSINE ETHANOLATE [Concomitant]
     Active Substance: FOSRAVUCONAZOLE L-LYSINE ETHANOLATE
     Dosage: UNK

REACTIONS (1)
  - Gastrointestinal haemorrhage [Recovered/Resolved]

NARRATIVE: CASE EVENT DATE: 20251026
